FAERS Safety Report 16016050 (Version 1)
Quarter: 2019Q1

REPORT INFORMATION
  Report Type: Spontaneous
  Country: AU (occurrence: AU)
  Receive Date: 20190228
  Receipt Date: 20190228
  Transmission Date: 20190418
  Serious: Yes (Hospitalization)
  Sender: FDA-Public Use
  Company Number: AU-009507513-1902AUS011544

PATIENT
  Sex: Female

DRUGS (3)
  1. MEKINIST [Suspect]
     Active Substance: TRAMETINIB DIMETHYL SULFOXIDE
     Indication: PRODUCT USED FOR UNKNOWN INDICATION
     Dosage: 2 DOSAGE FORM, QD (ALSO REPORT AS UNK UNK, BID)
     Route: 065
     Dates: end: 20161207
  2. TAFINLAR [Suspect]
     Active Substance: DABRAFENIB MESYLATE
     Indication: PRODUCT USED FOR UNKNOWN INDICATION
     Dosage: 2 DOSAGE FORM, QD (ALSO REPORT AD UNK UNK, BID)
     Route: 065
     Dates: end: 20161207
  3. KEYTRUDA [Suspect]
     Active Substance: PEMBROLIZUMAB
     Indication: PRODUCT USED FOR UNKNOWN INDICATION
     Dosage: 1 DF, UNK
     Route: 065
     Dates: start: 20160421

REACTIONS (8)
  - Vision blurred [Unknown]
  - Pyrexia [Unknown]
  - Heart rate increased [Unknown]
  - Paraesthesia [Unknown]
  - Swelling face [Unknown]
  - Peripheral swelling [Unknown]
  - Hepatic failure [Unknown]
  - Skin wound [Unknown]

NARRATIVE: CASE EVENT DATE: 201701
